FAERS Safety Report 8274192-0 (Version None)
Quarter: 2012Q2

REPORT INFORMATION
  Report Type: 
  Country: None (occurrence: None)
  Receive Date: 20120411
  Receipt Date: 20120403
  Transmission Date: 20120825
  Serious: Yes (Other)
  Sender: FDA-Public Use
  Company Number: KR-B.I. PHARMACEUTICALS,INC./RIDGEFIELD-2012-EU-01902GD

PATIENT
  Sex: Male

DRUGS (2)
  1. SPIRIVA [Suspect]
     Indication: CHRONIC OBSTRUCTIVE PULMONARY DISEASE
     Dosage: 18 MCG
     Route: 055
  2. FLUTICASONE PROPIONATE/SALMETEROL [Suspect]
     Indication: CHRONIC OBSTRUCTIVE PULMONARY DISEASE
     Dosage: FLUTICASONE PROPIONATE/SALMETEROL 250/50 MCG/PUFF, 1 PUFF TWICE DAILY
     Route: 055

REACTIONS (2)
  - DYSPLASIA [None]
  - GASTRIC ADENOMA [None]
